FAERS Safety Report 5609378-4 (Version None)
Quarter: 2008Q1

REPORT INFORMATION
  Report Type: 
  Country: None (occurrence: None)
  Receive Date: 20080131
  Receipt Date: 20080128
  Transmission Date: 20080703
  Serious: Yes (Other)
  Sender: FDA-Public Use
  Company Number: US-ALLERGAN-0801129US

PATIENT
  Sex: Female

DRUGS (2)
  1. BOTOX COSMETIC [Suspect]
     Indication: SKIN WRINKLING
     Dosage: 15 UNITS, SINGLE
     Route: 030
     Dates: start: 20070927, end: 20070927
  2. STEROIDS [Concomitant]
     Indication: RHEUMATOID ARTHRITIS

REACTIONS (2)
  - MULTIPLE SCLEROSIS [None]
  - WRONG TECHNIQUE IN DRUG USAGE PROCESS [None]
